FAERS Safety Report 8895796 (Version 2)
Quarter: 2013Q1

REPORT INFORMATION
  Report Type: Spontaneous
  Country: US (occurrence: US)
  Receive Date: 20121108
  Receipt Date: 20130221
  Transmission Date: 20140127
  Serious: Yes (Death, Life-Threatening, Hospitalization, Other)
  Sender: FDA-Public Use
  Company Number: US-ELI_LILLY_AND_COMPANY-US201210009468

PATIENT
  Age: 50 Year
  Sex: Female
  Weight: 53.7 kg

DRUGS (14)
  1. CYMBALTA [Suspect]
     Indication: BIPOLAR DISORDER
     Dosage: 120 MG, QD
     Route: 048
     Dates: start: 20120327
  2. OLANZAPINE [Suspect]
     Indication: BIPOLAR DISORDER
     Dosage: 20 MG, QD
     Route: 048
     Dates: start: 20120327
  3. WELLBUTRIN [Concomitant]
     Indication: BIPOLAR DISORDER
     Dosage: 300MG, DAILY
     Route: 048
     Dates: start: 20120327
  4. VITAMIN B12                        /00056201/ [Concomitant]
     Indication: PROPHYLAXIS
  5. CITRICAL [Concomitant]
     Indication: PROPHYLAXIS
  6. IRON [Concomitant]
     Indication: PROPHYLAXIS
  7. TOPAMAX [Concomitant]
     Indication: BIPOLAR DISORDER
     Dosage: 50MG DAILY
     Route: 048
     Dates: start: 20120329
  8. PRAZOSIN HCL [Concomitant]
     Indication: HYPERTENSION
     Dosage: 1MG, DAILY
     Route: 048
     Dates: start: 20120810
  9. CLONAZEPAM [Concomitant]
     Indication: BIPOLAR DISORDER
     Dosage: 0.5MG DAILY
     Route: 048
     Dates: start: 20120327
  10. FOLIC ACID [Concomitant]
     Indication: PROPHYLAXIS
  11. PERCOCET [Concomitant]
     Indication: PAIN
     Dosage: 5-325MG, EVERY 6 HOURS
     Route: 048
     Dates: start: 20120327
  12. MORPHINE [Concomitant]
     Indication: PAIN
     Dosage: 30MG, EVERY 12 HOURS
     Route: 048
     Dates: start: 20120327
  13. OXYCODONE [Concomitant]
     Indication: PAIN
     Dosage: 60MG, EVERY 8 HOURS
     Route: 048
     Dates: start: 20120810
  14. OXYCONTIN [Concomitant]
     Indication: PAIN
     Dosage: 10MG, EVERY SIX HOURS
     Route: 048
     Dates: start: 20120810

REACTIONS (7)
  - Hypovolaemic shock [Fatal]
  - Gastrointestinal haemorrhage [Not Recovered/Not Resolved]
  - Blood sodium decreased [Not Recovered/Not Resolved]
  - Cardio-respiratory arrest [Unknown]
  - Gastrointestinal perforation [Unknown]
  - Blood glucose increased [Unknown]
  - Off label use [Unknown]
